FAERS Safety Report 20107300 (Version 2)
Quarter: 2021Q4

REPORT INFORMATION
  Report Type: Spontaneous
  Country: BR (occurrence: None)
  Receive Date: 20211124
  Receipt Date: 20211230
  Transmission Date: 20220303
  Serious: Yes (Other)
  Sender: FDA-Public Use
  Company Number: 2021A820188

PATIENT
  Sex: Female

DRUGS (2)
  1. SYMBICORT [Suspect]
     Active Substance: BUDESONIDE\FORMOTEROL FUMARATE DIHYDRATE
     Indication: Asthma
     Dosage: TWO INHALATIONS/ PUFFS, TWO TIMES A DAY
     Route: 055
     Dates: start: 202110
  2. PULMICORT FLEXHALER [Suspect]
     Active Substance: BUDESONIDE

REACTIONS (3)
  - Asthmatic crisis [Recovering/Resolving]
  - Device delivery system issue [Not Recovered/Not Resolved]
  - Drug ineffective [Not Recovered/Not Resolved]

NARRATIVE: CASE EVENT DATE: 20210917
